FAERS Safety Report 5126354-9 (Version None)
Quarter: 2006Q4

REPORT INFORMATION
  Report Type: 
  Country: None (occurrence: None)
  Receive Date: 20061010
  Receipt Date: 20060922
  Transmission Date: 20070319
  Serious: Yes (Other)
  Sender: FDA-Public Use
  Company Number: CHPA2006US06739

PATIENT
  Age: 63 Year
  Sex: Female
  Weight: 104.3 kg

DRUGS (1)
  1. EXCEDRIN (MIGRAINE) [Suspect]
     Indication: SINUS HEADACHE
     Dosage: SEE IMAGE
     Route: 048
     Dates: start: 20060710, end: 20060710

REACTIONS (10)
  - DYSPHAGIA [None]
  - FEAR [None]
  - FOREIGN BODY TRAUMA [None]
  - INITIAL INSOMNIA [None]
  - NERVOUSNESS [None]
  - PHARMACEUTICAL PRODUCT COMPLAINT [None]
  - PHARYNGITIS [None]
  - PHARYNGOLARYNGEAL PAIN [None]
  - THROAT IRRITATION [None]
  - WRONG TECHNIQUE IN DRUG USAGE PROCESS [None]
